FAERS Safety Report 6083267-6 (Version None)
Quarter: 2009Q1

REPORT INFORMATION
  Report Type: 
  Country: None (occurrence: None)
  Receive Date: 20090213
  Receipt Date: 20090213
  Transmission Date: 20090719
  Serious: Yes (Other)
  Sender: FDA-Public Use
  Company Number: None

PATIENT
  Age: 30 Year
  Sex: Male
  Weight: 97.5234 kg

DRUGS (1)
  1. LEVAQUIN [Suspect]
     Indication: PROSTATITIS
     Dosage: 500MG ONCE A DAY PO
     Route: 048
     Dates: start: 20081116, end: 20081216

REACTIONS (11)
  - ANHEDONIA [None]
  - ANXIETY [None]
  - ARTHRALGIA [None]
  - ASTHENIA [None]
  - DYSGEUSIA [None]
  - FEELING OF DESPAIR [None]
  - HEADACHE [None]
  - NERVOUSNESS [None]
  - PARAESTHESIA [None]
  - POISONING [None]
  - SUICIDAL IDEATION [None]
